FAERS Safety Report 8905374 (Version 1)
Quarter: 2012Q4

REPORT INFORMATION
  Report Type: 
  Country: US (occurrence: US)
  Receive Date: 20121112
  Receipt Date: 20121112
  Transmission Date: 20130627
  Serious: Yes (Hospitalization)
  Sender: FDA-Public Use
  Company Number: US-BAYER-2012-116932

PATIENT
  Age: 43 Year
  Sex: Female
  Weight: 97.51 kg

DRUGS (7)
  1. YASMIN [Suspect]
     Indication: BIRTH CONTROL
  2. PREVACID [Concomitant]
  3. ALLEGRA [Concomitant]
     Indication: RHINITIS
     Dosage: 180 mg, daily
  4. SINGULAIR [Concomitant]
     Indication: RHINITIS
     Dosage: 10 mg, at night
  5. PROCRIT [Concomitant]
  6. IRON SUPPLEMENT [Concomitant]
  7. LORTAB [Concomitant]
     Dosage: UNK;PRN

REACTIONS (1)
  - Deep vein thrombosis [Recovered/Resolved]
